FAERS Safety Report 6603573-3 (Version None)
Quarter: 2010Q1

REPORT INFORMATION
  Report Type: 
  Country: None (occurrence: None)
  Receive Date: 20100226
  Receipt Date: 20091027
  Transmission Date: 20100710
  Serious: No
  Sender: FDA-Public Use
  Company Number: A0812584A

PATIENT
  Age: 29 Year
  Sex: Male

DRUGS (3)
  1. VALTREX [Suspect]
     Indication: EPSTEIN-BARR VIRUS INFECTION
     Dosage: 1000MG TWICE PER DAY
     Route: 048
     Dates: start: 19930101
  2. DONNATAL [Concomitant]
  3. PREDNISONE TAB [Concomitant]

REACTIONS (3)
  - EPSTEIN-BARR VIRUS INFECTION [None]
  - MEMORY IMPAIRMENT [None]
  - OFF LABEL USE [None]
